FAERS Safety Report 6091077-9 (Version None)
Quarter: 2009Q1

REPORT INFORMATION
  Report Type: 
  Country: None (occurrence: None)
  Receive Date: 20090225
  Receipt Date: 20090216
  Transmission Date: 20090719
  Serious: Yes (Hospitalization)
  Sender: FDA-Public Use
  Company Number: US-PFIZER INC-2009173687

PATIENT
  Age: 25 Year
  Sex: Female

DRUGS (1)
  1. ZYRTEC [Suspect]
     Route: 048

REACTIONS (1)
  - HOSPITALISATION [None]
